FAERS Safety Report 16946614 (Version 2)
Quarter: 2019Q4

REPORT INFORMATION
  Report Type: Report from Study
  Country: None (occurrence: DK)
  Receive Date: 20191022
  Receipt Date: 20191205
  Transmission Date: 20200122
  Serious: Yes (Hospitalization)
  Sender: FDA-Public Use
  Company Number: DK-ABBVIE-19P-044-2963140-00

PATIENT
  Age: 68 Year
  Sex: Male

DRUGS (22)
  1. VENETOCLAX. [Suspect]
     Active Substance: VENETOCLAX
     Indication: CHRONIC LYMPHOCYTIC LEUKAEMIA
     Route: 048
     Dates: start: 20161110, end: 20161116
  2. IMMUNGLOBULIN [Concomitant]
     Active Substance: HUMAN IMMUNOGLOBULIN G
     Indication: PRODUCT USED FOR UNKNOWN INDICATION
     Route: 042
     Dates: start: 20161201
  3. VENTOLINE [Concomitant]
     Active Substance: ALBUTEROL
     Indication: ASTHMA
     Route: 055
     Dates: start: 20170202, end: 20170402
  4. MORFIN [Concomitant]
     Indication: OSTEOPOROTIC FRACTURE
     Route: 048
     Dates: start: 20150730
  5. VENETOCLAX. [Suspect]
     Active Substance: VENETOCLAX
     Route: 048
     Dates: start: 20161124, end: 20161130
  6. ACLASTA [Concomitant]
     Active Substance: ZOLEDRONIC ACID
     Indication: OSTEOPOROSIS
     Route: 041
     Dates: start: 20161014
  7. PREGABALIN. [Concomitant]
     Active Substance: PREGABALIN
     Indication: HEADACHE
     Route: 048
     Dates: start: 20190823, end: 20191004
  8. VENETOCLAX. [Suspect]
     Active Substance: VENETOCLAX
     Route: 048
     Dates: start: 20161208
  9. MACROGOL [Concomitant]
     Active Substance: POLYETHYLENE GLYCOLS
     Indication: CONSTIPATION
     Dosage: 2 PIECES
     Route: 048
     Dates: start: 20160930
  10. PARACETAMOL [Concomitant]
     Active Substance: ACETAMINOPHEN
     Indication: BONE PAIN
     Route: 048
     Dates: start: 20160930
  11. METADON [Concomitant]
     Active Substance: METHADONE HYDROCHLORIDE
     Route: 048
     Dates: start: 20170714
  12. CALCIUM [Concomitant]
     Active Substance: CALCIUM
     Indication: OSTEOPOROSIS PROPHYLAXIS
     Dosage: 1 PIECE
     Route: 048
     Dates: start: 20150203
  13. SYMBICORT [Concomitant]
     Active Substance: BUDESONIDE\FORMOTEROL FUMARATE DIHYDRATE
     Indication: ASTHMA
     Dosage: 4.5+160 UG
     Route: 055
     Dates: start: 20160407
  14. ONDANSETRON [Concomitant]
     Active Substance: ONDANSETRON
     Indication: NAUSEA
     Route: 048
     Dates: start: 20161208
  15. ALLOPURINOL. [Concomitant]
     Active Substance: ALLOPURINOL
     Indication: PROPHYLAXIS
     Route: 048
     Dates: start: 20161107
  16. VENETOCLAX. [Suspect]
     Active Substance: VENETOCLAX
     Route: 048
     Dates: start: 20161117, end: 20161123
  17. PREGABALIN. [Concomitant]
     Active Substance: PREGABALIN
     Route: 048
     Dates: start: 20191004, end: 20191021
  18. VENETOCLAX. [Suspect]
     Active Substance: VENETOCLAX
     Route: 048
     Dates: start: 20161201, end: 20161207
  19. VENTOLINE [Concomitant]
     Active Substance: ALBUTEROL
     Route: 055
     Dates: start: 20170203
  20. NATRIUMPICOSULFAT [Concomitant]
     Indication: CONSTIPATION
     Route: 048
     Dates: start: 20170519
  21. METADON [Concomitant]
     Active Substance: METHADONE HYDROCHLORIDE
     Indication: BONE PAIN
     Route: 048
     Dates: start: 20161001, end: 20170714
  22. PREGABALIN. [Concomitant]
     Active Substance: PREGABALIN
     Route: 048
     Dates: start: 20191022

REACTIONS (2)
  - Pneumonia [Recovered/Resolved]
  - Cough [Recovered/Resolved]

NARRATIVE: CASE EVENT DATE: 20191012
